FAERS Safety Report 18882988 (Version 1)
Quarter: 2021Q1

REPORT INFORMATION
  Report Type: Spontaneous
  Country: US (occurrence: US)
  Receive Date: 20210212
  Receipt Date: 20210212
  Transmission Date: 20210420
  Serious: No
  Sender: FDA-Public Use
  Company Number: US-SA-2021SA044212

PATIENT
  Sex: Male

DRUGS (1)
  1. DUPIXENT [Suspect]
     Active Substance: DUPILUMAB
     Dosage: 300 MG UNDER SKIN EXPIRATION DATE: 30?04?2022 FIRST SHIPPED FROM ACCREDO ON 11/04/2019. START DATE U
     Route: 058

REACTIONS (1)
  - Rash [Unknown]
